FAERS Safety Report 8410929-5 (Version None)
Quarter: 2012Q2

REPORT INFORMATION
  Report Type: 
  Country: None (occurrence: None)
  Receive Date: 20120605
  Receipt Date: 20120530
  Transmission Date: 20120825
  Serious: Yes (Disabling)
  Sender: FDA-Public Use
  Company Number: LT-GENZYME-CERZ-1002518

PATIENT
  Age: 6 Year
  Sex: Female

DRUGS (2)
  1. CEREZYME [Suspect]
     Indication: GAUCHER'S DISEASE
     Dosage: 20 IU/KG, Q2W
     Route: 042
  2. CEREZYME [Suspect]
     Dosage: 60 IU/KG, Q2W
     Route: 042
     Dates: start: 20080101

REACTIONS (6)
  - ABASIA [None]
  - NEUROLOGICAL SYMPTOM [None]
  - TRACHEOSTOMY [None]
  - KYPHOSIS [None]
  - BEDRIDDEN [None]
  - EPILEPSY [None]
